FAERS Safety Report 10017783 (Version 2)
Quarter: 2014Q1

REPORT INFORMATION
  Report Type: Spontaneous
  Country: US (occurrence: US)
  Receive Date: 20140318
  Receipt Date: 20140318
  Transmission Date: 20141002
  Serious: No
  Sender: FDA-Public Use
  Company Number: US-BRISTOL-MYERS SQUIBB COMPANY-18845552

PATIENT
  Sex: Female

DRUGS (1)
  1. ERBITUX [Suspect]
     Indication: COLORECTAL CANCER
     Dates: start: 20121226

REACTIONS (5)
  - Fatigue [Unknown]
  - Dry skin [Unknown]
  - Nail disorder [Unknown]
  - Alopecia [Unknown]
  - Eye disorder [Unknown]
